FAERS Safety Report 7496055-0 (Version None)
Quarter: 2011Q2

REPORT INFORMATION
  Report Type: 
  Country: None (occurrence: None)
  Receive Date: 20110523
  Receipt Date: 20110516
  Transmission Date: 20111010
  Serious: Yes (Disabling)
  Sender: FDA-Public Use
  Company Number: GB-JNJFOC-20110507655

PATIENT
  Age: 31 Year
  Sex: Male

DRUGS (3)
  1. DARUNAVIR ETHANOLATE [Suspect]
     Indication: HIV INFECTION
     Route: 048
     Dates: start: 20110421, end: 20110428
  2. EFAVIRENZ [Concomitant]
     Route: 048
     Dates: start: 20110201, end: 20110401
  3. TRUVADA [Concomitant]
     Route: 048
     Dates: start: 20110201, end: 20110401

REACTIONS (10)
  - DIZZINESS [None]
  - RHINORRHOEA [None]
  - MALAISE [None]
  - HEADACHE [None]
  - DIARRHOEA [None]
  - SOMNOLENCE [None]
  - INSOMNIA [None]
  - ABDOMINAL PAIN UPPER [None]
  - AGEUSIA [None]
  - VOMITING [None]
